FAERS Safety Report 8406525-6 (Version None)
Quarter: 2012Q2

REPORT INFORMATION
  Report Type: 
  Country: None (occurrence: None)
  Receive Date: 20120604
  Receipt Date: 20120130
  Transmission Date: 20120825
  Serious: No
  Sender: FDA-Public Use
  Company Number: US-COVIDIEN/TYCO HEALTHCARE/MALLINCKRODT-T201200535

PATIENT
  Sex: Female

DRUGS (2)
  1. ALBUTEROL [Concomitant]
     Indication: ASTHMA
     Dosage: 2 PUFFS, PRN
  2. ACETAMINOPHEN AND CODEINE PHOSPHATE [Suspect]
     Indication: ARTHRALGIA
     Dosage: 300/30, 1 TABLET TID, PRN
     Dates: start: 20120126

REACTIONS (2)
  - CHEST DISCOMFORT [None]
  - SINUS CONGESTION [None]
